FAERS Safety Report 19683010 (Version 1)
Quarter: 2021Q3

REPORT INFORMATION
  Report Type: Spontaneous
  Country: US (occurrence: US)
  Receive Date: 20210810
  Receipt Date: 20210810
  Transmission Date: 20211014
  Serious: Yes (Other)
  Sender: FDA-Public Use
  Company Number: US-BAUSCH-BL-2021-026885

PATIENT
  Age: 76 Year
  Sex: Male
  Weight: 95.34 kg

DRUGS (3)
  1. PRESERVISION AREDS 2 FORMULA MINIGEL EYE VITAMINS [Suspect]
     Active Substance: MINERALS\VITAMINS
     Indication: GLAUCOMA
     Route: 048
     Dates: start: 202107, end: 20210728
  2. LATANOPROST. [Concomitant]
     Active Substance: LATANOPROST
     Indication: PRODUCT USED FOR UNKNOWN INDICATION
     Route: 047
  3. BRIMONIDINE TARTRATE OPHTHALMIC SOLUTION 0.2% [Suspect]
     Active Substance: BRIMONIDINE TARTRATE
     Indication: GLAUCOMA
     Dosage: ONE DROP IN EACH EYE TWICE DAILY
     Route: 047
     Dates: start: 202106, end: 20210728

REACTIONS (3)
  - Eye pain [Recovering/Resolving]
  - Eye irritation [Recovering/Resolving]
  - Visual impairment [Recovering/Resolving]

NARRATIVE: CASE EVENT DATE: 20210728
